FAERS Safety Report 5501203-5 (Version None)
Quarter: 2007Q4

REPORT INFORMATION
  Report Type: 
  Country: None (occurrence: None)
  Receive Date: 20071026
  Receipt Date: 20071011
  Transmission Date: 20080405
  Serious: Yes (Hospitalization)
  Sender: FDA-Public Use
  Company Number: CHPA2007US10434

PATIENT
  Sex: Female

DRUGS (1)
  1. GAS-X EXTRA STRENGTH SOFTGELS(NCH)(SIMETHICONE) SOFT GELATIN CAPSULE [Suspect]
     Dosage: 750 MG, IN 12 HOURS, ORAL
     Route: 048

REACTIONS (2)
  - INCORRECT DOSE ADMINISTERED [None]
  - MUSCULAR WEAKNESS [None]
